FAERS Safety Report 5344001-8 (Version None)
Quarter: 2007Q2

REPORT INFORMATION
  Report Type: 
  Country: None (occurrence: None)
  Receive Date: 20070604
  Receipt Date: 20070525
  Transmission Date: 20071010
  Serious: Yes (Death, Other)
  Sender: FDA-Public Use
  Company Number: US-PURDUE-USA_2007_0027590

PATIENT
  Age: 1 Day
  Sex: Female

DRUGS (2)
  1. OXYCODONE HCL [Suspect]
     Indication: DRUG EXPOSURE DURING PREGNANCY
     Dosage: UNK, UNK
     Route: 015
  2. COCAINE [Suspect]
     Indication: DRUG EXPOSURE DURING PREGNANCY
     Dosage: UNK, UNK
     Route: 015

REACTIONS (3)
  - DEATH NEONATAL [None]
  - NEONATAL COMPLICATIONS OF SUBSTANCE ABUSE [None]
  - PREMATURE BABY [None]
